FAERS Safety Report 22155090 (Version 1)
Quarter: 2023Q1

REPORT INFORMATION
  Report Type: Spontaneous
  Country: US (occurrence: US)
  Receive Date: 20230330
  Receipt Date: 20230330
  Transmission Date: 20230417
  Serious: Yes (Other)
  Sender: FDA-Public Use
  Company Number: US-SA-SAC20230329000848

PATIENT
  Sex: Male

DRUGS (6)
  1. DUPIXENT [Suspect]
     Active Substance: DUPILUMAB
     Indication: Dermatitis atopic
     Dosage: 300 MG, QOW
     Route: 058
  2. AZELASTINE [Concomitant]
     Active Substance: AZELASTINE
     Dosage: AZELASTINE H POW
  3. DORZOLAMIDE [Concomitant]
     Active Substance: DORZOLAMIDE
     Dosage: DORZOLAMIDE SOL 22.3-6.8
  4. HYDROCORTISONE [Concomitant]
     Active Substance: HYDROCORTISONE
     Dosage: HYDROCORTISO LOT 2.5%
  5. LATANOPROST [Concomitant]
     Active Substance: LATANOPROST
     Dosage: LATANOPROST SOL 0.005%
  6. TRIAMCINOLONE [Concomitant]
     Active Substance: TRIAMCINOLONE
     Dosage: TRIAMCINOLON POW

REACTIONS (7)
  - Glaucoma [Unknown]
  - Visual impairment [Unknown]
  - Depression [Unknown]
  - Dermatitis atopic [Unknown]
  - Burning sensation [Unknown]
  - Skin fissures [Unknown]
  - Conjunctivitis [Unknown]
